FAERS Safety Report 6073186-3 (Version None)
Quarter: 2009Q1

REPORT INFORMATION
  Report Type: 
  Country: None (occurrence: None)
  Receive Date: 20090206
  Receipt Date: 20090202
  Transmission Date: 20090719
  Serious: Yes (Other)
  Sender: FDA-Public Use
  Company Number: THQ2009A00488

PATIENT
  Age: 69 Year
  Sex: Female

DRUGS (8)
  1. ACTOS [Suspect]
     Indication: DIABETES MELLITUS
     Dosage: 30 MG (30 MG, 1 IN 1 D) PER ORAL
     Route: 048
     Dates: start: 20080901
  2. TEGRETOL [Concomitant]
  3. HYPOTHIAZID (HYDROCHLOROTHIAZIDE) [Concomitant]
  4. NOOTROPIL (PIRACETAM) [Concomitant]
  5. ASPIRIN [Concomitant]
  6. BETASERC (BETAHISTINE HYDROCHLORIDE) [Concomitant]
  7. ATORIS (ATORVASTATIN) [Concomitant]
  8. METOPROLOL [Concomitant]

REACTIONS (2)
  - ASCITES [None]
  - OVARIAN CANCER [None]
